FAERS Safety Report 8474666-3 (Version None)
Quarter: 2012Q2

REPORT INFORMATION
  Report Type: 
  Country: None (occurrence: None)
  Receive Date: 20120622
  Receipt Date: 20120612
  Transmission Date: 20120825
  Serious: Yes (Other)
  Sender: FDA-Public Use
  Company Number: AUR-APL-2012-02262

PATIENT
  Age: 49 Year
  Sex: Male

DRUGS (8)
  1. VALPROIC ACID [Suspect]
     Indication: PRODUCT USED FOR UNKNOWN INDICATION
     Dosage: (750 MG), ORAL
     Route: 048
     Dates: start: 20100608
  2. CLOZARIL [Suspect]
     Indication: PRODUCT USED FOR UNKNOWN INDICATION
     Dosage: (350 MG), ORAL
     Route: 048
     Dates: start: 20101110, end: 20120119
  3. ROCYCLIDINE (PROCYCLIDINE) [Concomitant]
  4. SIMVASTATIN [Concomitant]
  5. RISPERIDONE [Suspect]
     Indication: PRODUCT USED FOR UNKNOWN INDICATION
     Dosage: 2 MG (1 MG, 2 IN 1 D), ORAL
     Route: 048
     Dates: start: 20100608, end: 20120127
  6. PIRENZEPINE (PIRENZEPINE) [Suspect]
     Indication: PRODUCT USED FOR UNKNOWN INDICATION
     Dosage: (50 MG), ORAL
     Route: 048
     Dates: start: 20100608, end: 20120120
  7. OLANZAPINE [Suspect]
     Indication: PRODUCT USED FOR UNKNOWN INDICATION
     Dosage: (15 MG), ORAL
     Route: 048
     Dates: start: 20120127
  8. CITALOPRAM HYDROBROMIDE [Concomitant]

REACTIONS (2)
  - PLATELET COUNT DECREASED [None]
  - HEPATITIS [None]
